FAERS Safety Report 6792914-2 (Version None)
Quarter: 2010Q2

REPORT INFORMATION
  Report Type: 
  Country: None (occurrence: None)
  Receive Date: 20100624
  Receipt Date: 20081111
  Transmission Date: 20101027
  Serious: No
  Sender: FDA-Public Use
  Company Number: US-PFIZER INC-2008085878

PATIENT
  Age: 54 Year

DRUGS (3)
  1. GEODON [Suspect]
     Indication: BIPOLAR DISORDER
     Dates: start: 20080501, end: 20080901
  2. LEXAPRO [Concomitant]
  3. ZOLPIDEM [Concomitant]

REACTIONS (1)
  - DYSTONIA [None]
